FAERS Safety Report 4715671-X (Version None)
Quarter: 2005Q3

REPORT INFORMATION
  Report Type: 
  Country: None (occurrence: None)
  Receive Date: 20050715
  Receipt Date: 20050715
  Transmission Date: 20060218
  Serious: Yes (Hospitalization)
  Sender: FDA-Public Use
  Company Number: None

PATIENT
  Age: 69 Year
  Sex: Female
  Weight: 66.7 kg

DRUGS (1)
  1. DARVOCET-N 100 [Suspect]
     Dosage: 2 TABS Q 4 H PRN
     Dates: start: 20050708, end: 20050714

REACTIONS (1)
  - CARBON DIOXIDE INCREASED [None]
